FAERS Safety Report 6500119-5 (Version None)
Quarter: 2009Q4

REPORT INFORMATION
  Report Type: 
  Country: None (occurrence: None)
  Receive Date: 20091214
  Receipt Date: 20091214
  Transmission Date: 20100525
  Serious: No
  Sender: FDA-Public Use
  Company Number: None

PATIENT
  Sex: Male
  Weight: 96.6162 kg

DRUGS (3)
  1. LISINIPRIL [Suspect]
     Indication: ATRIAL FIBRILLATION
     Dates: start: 20091022, end: 20091030
  2. LISINIPRIL [Suspect]
     Indication: BLOOD PRESSURE INCREASED
     Dates: start: 20091022, end: 20091030
  3. LISINIPRIL [Suspect]
     Indication: PULMONARY HYPERTENSION
     Dates: start: 20091022, end: 20091030

REACTIONS (1)
  - BLOOD POTASSIUM INCREASED [None]
